FAERS Safety Report 14223813 (Version 1)
Quarter: 2017Q4

REPORT INFORMATION
  Report Type: Spontaneous
  Country: IE (occurrence: US)
  Receive Date: 20171125
  Receipt Date: 20171125
  Transmission Date: 20180321
  Serious: Yes (Hospitalization, Other)
  Sender: FDA-Public Use
  Company Number: US-CONCORDIA PHARMACEUTICALS INC.-GSH201710-005899

PATIENT
  Age: 65 Year
  Sex: Female

DRUGS (8)
  1. TERIPARATIDE [Concomitant]
     Active Substance: TERIPARATIDE
  2. DYAZIDE [Concomitant]
     Active Substance: HYDROCHLOROTHIAZIDE\TRIAMTERENE
     Indication: OEDEMA
  3. AN OVER-THE-COUNTER NONSTEROIDAL ANTI-IN?AMMATORY [Concomitant]
  4. BONIVA [Concomitant]
     Active Substance: IBANDRONATE SODIUM
  5. NUTRITIONAL SUPPLEMENTS [Concomitant]
     Active Substance: DIETARY SUPPLEMENT
  6. SYNTHROID [Concomitant]
     Active Substance: LEVOTHYROXINE SODIUM
  7. EVISTA [Concomitant]
     Active Substance: RALOXIFENE HYDROCHLORIDE
  8. PLAQUENIL [Suspect]
     Active Substance: HYDROXYCHLOROQUINE SULFATE
     Indication: RHEUMATOID ARTHRITIS
     Route: 048

REACTIONS (15)
  - Cardiomyopathy [Recovered/Resolved]
  - Sinus bradycardia [Unknown]
  - Cardiac index decreased [Unknown]
  - Pulmonary hypertension [Recovering/Resolving]
  - Dizziness [Unknown]
  - Atrioventricular block second degree [Recovered/Resolved]
  - Dyspnoea [Unknown]
  - Palpitations [Unknown]
  - Brain natriuretic peptide increased [Unknown]
  - Conduction disorder [Unknown]
  - Hyperdynamic left ventricle [Recovered/Resolved]
  - Bradyarrhythmia [Unknown]
  - Bundle branch block right [Recovered/Resolved]
  - Chest discomfort [Unknown]
  - Cardiac hypertrophy [Unknown]
